FAERS Safety Report 6609666-9 (Version None)
Quarter: 2010Q1

REPORT INFORMATION
  Report Type: 
  Country: None (occurrence: None)
  Receive Date: 20100302
  Receipt Date: 20100215
  Transmission Date: 20100710
  Serious: Yes (Other)
  Sender: FDA-Public Use
  Company Number: NO-PFIZER INC-2010019743

PATIENT
  Age: 53 Year
  Sex: Female

DRUGS (1)
  1. CYKLOKAPRON [Suspect]

REACTIONS (1)
  - ACUTE MYOCARDIAL INFARCTION [None]
